FAERS Safety Report 4462546-X (Version None)
Quarter: 2004Q3

REPORT INFORMATION
  Report Type: 
  Country: None (occurrence: None)
  Receive Date: 20040928
  Receipt Date: 20040915
  Transmission Date: 20050211
  Serious: Yes (Other)
  Sender: FDA-Public Use
  Company Number: 2004067026

PATIENT
  Age: 40 Year
  Sex: Male

DRUGS (1)
  1. VIAGRA [Suspect]
     Indication: ERECTILE DYSFUNCTION
     Dosage: (25 MG, AS NECESSARY), ORAL
     Route: 048

REACTIONS (3)
  - GLOMERULONEPHRITIS MEMBRANOUS [None]
  - SINUSITIS [None]
  - THROMBOSIS [None]
